FAERS Safety Report 10208524 (Version 1)
Quarter: 2014Q2

REPORT INFORMATION
  Report Type: Spontaneous
  Country: US (occurrence: US)
  Receive Date: 20140530
  Receipt Date: 20140530
  Transmission Date: 20141212
  Serious: No
  Sender: FDA-Public Use
  Company Number: US-TEVA-484521USA

PATIENT
  Sex: Female
  Weight: 86.26 kg

DRUGS (5)
  1. ACTIQ [Suspect]
     Indication: PAIN
     Dates: start: 2006, end: 2012
  2. PREGABALIN [Concomitant]
     Indication: PAIN
  3. QUINAPRIL HYDROCHLORIDE [Concomitant]
     Indication: HYPERTENSION
  4. LEVOTHYROXINE [Concomitant]
     Indication: HYPOTHYROIDISM
  5. ESCITALOPRAM OXALATE [Concomitant]
     Indication: DEPRESSION

REACTIONS (4)
  - Tooth fracture [Recovered/Resolved]
  - Tooth disorder [Recovered/Resolved]
  - Tooth erosion [Recovered/Resolved]
  - Off label use [Unknown]
